FAERS Safety Report 17028589 (Version 5)
Quarter: 2020Q4

REPORT INFORMATION
  Report Type: Report from Study
  Country: None (occurrence: DE)
  Receive Date: 20191113
  Receipt Date: 20201021
  Transmission Date: 20210113
  Serious: Yes (Other)
  Sender: FDA-Public Use
  Company Number: DE-ABBVIE-19P-062-2998333-00

PATIENT
  Age: 45 Year
  Sex: Female
  Weight: 62 kg

DRUGS (9)
  1. RIBOCICLIB. [Suspect]
     Active Substance: RIBOCICLIB
     Dosage: 200 MILLIGRAM, QD
     Route: 048
     Dates: start: 20200408, end: 20200505
  2. LEUPRORELIN [Suspect]
     Active Substance: LEUPROLIDE ACETATE
     Indication: PRODUCT USED FOR UNKNOWN INDICATION
     Route: 065
  3. RIBOCICLIB. [Suspect]
     Active Substance: RIBOCICLIB
     Dosage: 400 MILLIGRAM, QD
     Route: 048
     Dates: start: 20200115, end: 20200407
  4. RIBOCICLIB. [Suspect]
     Active Substance: RIBOCICLIB
     Dosage: 400 MILLIGRAM, QD
     Route: 048
     Dates: start: 20191003, end: 20191217
  5. RIBOCICLIB. [Suspect]
     Active Substance: RIBOCICLIB
     Dosage: 400 MILLIGRAM, QD
     Route: 048
     Dates: start: 20200506
  6. RIBOCICLIB. [Suspect]
     Active Substance: RIBOCICLIB
     Indication: BREAST CANCER METASTATIC
     Dosage: 600 MILLIGRAM, QD
     Route: 048
     Dates: start: 20190921, end: 20191002
  7. RIBOCICLIB. [Suspect]
     Active Substance: RIBOCICLIB
     Dosage: 200 MILLIGRAM, QD
     Route: 048
     Dates: start: 20191218, end: 20200114
  8. LETROZOLE. [Suspect]
     Active Substance: LETROZOLE
     Indication: BREAST CANCER METASTATIC
     Route: 048
     Dates: start: 20190925
  9. METOCLOPRAMIDE. [Suspect]
     Active Substance: METOCLOPRAMIDE
     Indication: PRODUCT USED FOR UNKNOWN INDICATION
     Route: 065

REACTIONS (5)
  - Calcium deficiency [Recovered/Resolved]
  - Anaemia [Not Recovered/Not Resolved]
  - Nausea [Recovered/Resolved]
  - Electrocardiogram QT prolonged [Recovered/Resolved]
  - Upper respiratory tract infection [Recovered/Resolved]

NARRATIVE: CASE EVENT DATE: 20191002
